FAERS Safety Report 6575032-8 (Version None)
Quarter: 2010Q1

REPORT INFORMATION
  Report Type: 
  Country: None (occurrence: None)
  Receive Date: 20100209
  Receipt Date: 20100202
  Transmission Date: 20100710
  Serious: Yes (Hospitalization)
  Sender: FDA-Public Use
  Company Number: US-AMGEN-KDL390388

PATIENT
  Age: 85 Year
  Sex: Female

DRUGS (3)
  1. PROCRIT [Suspect]
     Indication: DRUG USE FOR UNKNOWN INDICATION
  2. PREDNISONE [Concomitant]
  3. HERBAL MEDICINE [INGREDIENT UNKNOWN] [Concomitant]
     Dates: start: 20090101

REACTIONS (8)
  - FALL [None]
  - FIBULA FRACTURE [None]
  - JOINT SPRAIN [None]
  - MEDICAL DEVICE COMPLICATION [None]
  - MOBILITY DECREASED [None]
  - MUSCLE SPASMS [None]
  - POLYMYALGIA RHEUMATICA [None]
  - TIBIA FRACTURE [None]
